FAERS Safety Report 20726984 (Version 1)
Quarter: 2022Q2

REPORT INFORMATION
  Report Type: Spontaneous
  Country: US (occurrence: US)
  Receive Date: 20220419
  Receipt Date: 20220419
  Transmission Date: 20220720
  Serious: Yes (Other)
  Sender: FDA-Public Use
  Company Number: US-PFIZER INC-202200586436

PATIENT
  Age: 59 Year
  Sex: Male

DRUGS (1)
  1. RAPAMUNE [Suspect]
     Active Substance: SIROLIMUS
     Dosage: TAKE 2 TABLETS (2 MG) BY MOUTH DAILY
     Route: 048

REACTIONS (1)
  - Neoplasm malignant [Unknown]
